FAERS Safety Report 7097788-0 (Version None)
Quarter: 2010Q4

REPORT INFORMATION
  Report Type: 
  Country: None (occurrence: None)
  Receive Date: 20101112
  Receipt Date: 20101029
  Transmission Date: 20110411
  Serious: Yes (Life-Threatening)
  Sender: FDA-Public Use
  Company Number: FR-RANBAXY-2010RR-39237

PATIENT
  Sex: Female

DRUGS (3)
  1. CEFPODOXIME PROXETIL [Suspect]
     Indication: LARYNGITIS
     Dosage: 100 MG, BID
     Route: 048
     Dates: start: 20100619, end: 20100619
  2. PREVISCAN [Concomitant]
  3. LERCANIDIPINE [Concomitant]

REACTIONS (1)
  - ANGIOEDEMA [None]
